FAERS Safety Report 6074229-3 (Version None)
Quarter: 2009Q1

REPORT INFORMATION
  Report Type: 
  Country: None (occurrence: None)
  Receive Date: 20090211
  Receipt Date: 20090129
  Transmission Date: 20090719
  Serious: Yes (Death, Hospitalization)
  Sender: FDA-Public Use
  Company Number: PHHO2009AR01401

PATIENT
  Sex: Male
  Weight: 79 kg

DRUGS (19)
  1. VALSARTAN [Suspect]
     Indication: ACUTE CORONARY SYNDROME
     Dosage: CODE NOT BROKEN
     Route: 048
     Dates: start: 20090112, end: 20090123
  2. PLACEBO COMP-PLA+ [Suspect]
     Indication: ACUTE CORONARY SYNDROME
     Dosage: CODE NOT BROKEN
     Route: 048
     Dates: start: 20090112, end: 20090123
  3. ASPIRIN [Suspect]
     Dosage: 100
     Dates: start: 20000201, end: 20090123
  4. ASPIRIN [Suspect]
     Dosage: 200
     Dates: start: 20090106, end: 20090123
  5. HEPARIN [Suspect]
     Dosage: 30000 UI
     Dates: start: 20090106, end: 20090108
  6. HEPARIN [Suspect]
     Dosage: 15000 UI
     Dates: start: 20090108, end: 20090110
  7. CLOPIDOGREL [Concomitant]
     Dosage: 75
     Dates: start: 20090106, end: 20090123
  8. ISOSORBIDE MONONITRATE [Concomitant]
  9. TERAZOSIN HCL [Concomitant]
  10. CONCOR [Concomitant]
  11. ATENOLOL [Concomitant]
  12. ISORDIL [Concomitant]
  13. ENALAPRIL [Concomitant]
  14. ALPRAZOLAM [Concomitant]
  15. ATORVASTATIN [Concomitant]
  16. AMIODARONE [Concomitant]
  17. DIGOXIN [Concomitant]
  18. FUROSEMIDE [Concomitant]
  19. INSULIN [Concomitant]

REACTIONS (10)
  - AGITATION [None]
  - CEREBRAL HAEMORRHAGE [None]
  - DISORIENTATION [None]
  - ECCHYMOSIS [None]
  - GINGIVAL BLEEDING [None]
  - IDIOPATHIC THROMBOCYTOPENIC PURPURA [None]
  - MOVEMENT DISORDER [None]
  - PETECHIAE [None]
  - RECTAL HAEMORRHAGE [None]
  - THROMBOCYTOPENIA [None]
